FAERS Safety Report 7116709-5 (Version None)
Quarter: 2010Q4

REPORT INFORMATION
  Report Type: 
  Country: None (occurrence: None)
  Receive Date: 20101122
  Receipt Date: 20101108
  Transmission Date: 20110411
  Serious: Yes (Other)
  Sender: FDA-Public Use
  Company Number: PHHY2010JP72880

PATIENT
  Age: 69 Year
  Sex: Male

DRUGS (3)
  1. REGITINE [Suspect]
  2. DOPAMINE [Concomitant]
     Dosage: 15 MCG/KG/MINUTE
  3. NORADRENALINE [Concomitant]
     Dosage: 0.07 MCG/KG/MINUTE

REACTIONS (3)
  - BLOOD PRESSURE DECREASED [None]
  - DIABETIC NEPHROPATHY [None]
  - RENAL TRANSPLANT [None]
